FAERS Safety Report 17558018 (Version 2)
Quarter: 2020Q2

REPORT INFORMATION
  Report Type: Spontaneous
  Country: US (occurrence: US)
  Receive Date: 20200319
  Receipt Date: 20200401
  Transmission Date: 20200713
  Serious: Yes (Other)
  Sender: FDA-Public Use
  Company Number: US-009507513-2003USA005495

PATIENT
  Sex: Female
  Weight: 57.6 kg

DRUGS (1)
  1. NEXPLANON [Suspect]
     Active Substance: ETONOGESTREL
     Dosage: 1 ROD, PER 3 YEARS

REACTIONS (5)
  - Device dislocation [Not Recovered/Not Resolved]
  - Complication of device removal [Not Recovered/Not Resolved]
  - No adverse event [Unknown]
  - Device placement issue [Not Recovered/Not Resolved]
  - Complication associated with device [Not Recovered/Not Resolved]
